FAERS Safety Report 22156096 (Version 1)
Quarter: 2023Q1

REPORT INFORMATION
  Report Type: Report from Study
  Country: DE (occurrence: DE)
  Receive Date: 20230330
  Receipt Date: 20230330
  Transmission Date: 20230418
  Serious: Yes (Other)
  Sender: FDA-Public Use
  Company Number: DE-ABBVIE-4338258

PATIENT
  Age: 62 Year
  Sex: Female

DRUGS (2)
  1. SKYRIZI [Suspect]
     Active Substance: RISANKIZUMAB-RZAA
     Indication: Psoriasis
     Dosage: THE START DATE OF EVENT DIAPHRAGM COLLAPSED, SCRATCHED NECK AND COULD NOT BREATHE ANYMORE SHOULD ...
     Route: 058
     Dates: start: 20230307
  2. SKYRIZI [Suspect]
     Active Substance: RISANKIZUMAB-RZAA
     Route: 058
     Dates: start: 202303

REACTIONS (10)
  - Diaphragmatic injury [Recovering/Resolving]
  - Chills [Recovering/Resolving]
  - Chest discomfort [Not Recovered/Not Resolved]
  - Pyrexia [Not Recovered/Not Resolved]
  - Asthenia [Not Recovered/Not Resolved]
  - Scratch [Not Recovered/Not Resolved]
  - Dyspnoea [Recovering/Resolving]
  - Psoriasis [Unknown]
  - Stress [Unknown]
  - Drug ineffective [Unknown]

NARRATIVE: CASE EVENT DATE: 20230307
